FAERS Safety Report 17999665 (Version 1)
Quarter: 2020Q3

REPORT INFORMATION
  Report Type: Spontaneous
  Country: US (occurrence: US)
  Receive Date: 20200709
  Receipt Date: 20200709
  Transmission Date: 20201103
  Serious: Yes (Death)
  Sender: FDA-Public Use
  Company Number: US-VISTAPHARM, INC.-VER202007-001168

PATIENT
  Age: 38 Year
  Sex: Female

DRUGS (1)
  1. ALBUTEROL. [Suspect]
     Active Substance: ALBUTEROL
     Indication: ASTHMA
     Dosage: UNKNOWN

REACTIONS (2)
  - Foetal death [None]
  - Exposure during pregnancy [Unknown]
